FAERS Safety Report 6966125-1 (Version None)
Quarter: 2010Q3

REPORT INFORMATION
  Report Type: 
  Country: None (occurrence: None)
  Receive Date: 20100903
  Receipt Date: 20100824
  Transmission Date: 20110219
  Serious: Yes (Hospitalization, Other)
  Sender: FDA-Public Use
  Company Number: PHHY2010BR56740

PATIENT
  Sex: Female

DRUGS (4)
  1. FORASEQ [Suspect]
     Indication: DYSPNOEA
     Dosage: TWICE A DAY
  2. CAPTOPRIL [Concomitant]
     Indication: HYPERTENSION
     Dosage: 2 DF, QD
     Route: 048
  3. HYDROCHLOROTHIAZIDE [Concomitant]
     Indication: HYPERTENSION
     Dosage: 1 DF, QD
     Route: 048
  4. AMLODIPINE BESYLATE [Concomitant]
     Indication: HYPERTENSION
     Dosage: 1 DF, QD
     Route: 048

REACTIONS (4)
  - ASTHENIA [None]
  - BRONCHOPNEUMONIA [None]
  - CHEST PAIN [None]
  - PRODUCTIVE COUGH [None]
